FAERS Safety Report 15712913 (Version 2)
Quarter: 2018Q4

REPORT INFORMATION
  Report Type: Spontaneous
  Country: GB (occurrence: GB)
  Receive Date: 20181212
  Receipt Date: 20181212
  Transmission Date: 20190205
  Serious: Yes (Other)
  Sender: FDA-Public Use
  Company Number: PHHY2018GB176115

PATIENT
  Age: 9 Year
  Sex: Female

DRUGS (3)
  1. AZATHIOPRINE. [Concomitant]
     Active Substance: AZATHIOPRINE
     Indication: AUTOIMMUNE PANCREATITIS
     Route: 065
  2. PREDNISOLONE. [Suspect]
     Active Substance: PREDNISOLONE
     Indication: AUTOIMMUNE PANCREATITIS
     Dosage: UNK (WEANED DOSE GRADUALLY WEANED AND STOPPED AFTER 2 YEARS)
     Route: 065
  3. PREDNISOLONE. [Suspect]
     Active Substance: PREDNISOLONE
     Dosage: 1 MG/KG, UNK (GRADUALLY WEANED AND STOPPED AFTER 2 YEARS)
     Route: 065

REACTIONS (3)
  - Type 2 diabetes mellitus [Unknown]
  - Hirsutism [Unknown]
  - Weight increased [Unknown]
